FAERS Safety Report 10609949 (Version 4)
Quarter: 2015Q1

REPORT INFORMATION
  Report Type: Spontaneous
  Country: JP (occurrence: JP)
  Receive Date: 20141126
  Receipt Date: 20150202
  Transmission Date: 20150720
  Serious: Yes (Hospitalization)
  Sender: FDA-Public Use
  Company Number: JP-PFIZER INC-2014325168

PATIENT
  Age: 51 Year
  Sex: Female
  Weight: 51 kg

DRUGS (4)
  1. LYRICA [Suspect]
     Active Substance: PREGABALIN
     Indication: OSTEOARTHRITIS
     Dosage: 75 MG, 1X/DAY
     Route: 048
     Dates: start: 20140607, end: 20141115
  2. LORCAM [Suspect]
     Active Substance: LORNOXICAM
     Indication: OSTEOARTHRITIS
     Dosage: 12 MG, DAILY
     Route: 048
     Dates: start: 20140308, end: 20141115
  3. MUCOSTA [Suspect]
     Active Substance: REBAMIPIDE
     Indication: OSTEOARTHRITIS
     Dosage: 300 MG, DAILY
     Route: 048
     Dates: start: 20140308, end: 20141115
  4. MUCOSTA [Suspect]
     Active Substance: REBAMIPIDE
     Indication: PROPHYLAXIS

REACTIONS (2)
  - Drug-induced liver injury [Recovering/Resolving]
  - Product use issue [Unknown]

NARRATIVE: CASE EVENT DATE: 20140607
